FAERS Safety Report 6804652-8 (Version None)
Quarter: 2010Q2

REPORT INFORMATION
  Report Type: 
  Country: None (occurrence: None)
  Receive Date: 20100628
  Receipt Date: 20070427
  Transmission Date: 20101027
  Serious: No
  Sender: FDA-Public Use
  Company Number: US-PFIZER INC-2007034926

PATIENT
  Sex: Male
  Weight: 84.09 kg

DRUGS (4)
  1. SUTENT [Suspect]
     Indication: RENAL CELL CARCINOMA
     Dates: start: 20070328
  2. ZOLOFT [Concomitant]
  3. XANAX [Concomitant]
  4. OTHER NERVOUS SYSTEM DRUGS [Concomitant]
     Indication: NERVOUS SYSTEM DISORDER

REACTIONS (1)
  - PERIORBITAL OEDEMA [None]
